FAERS Safety Report 19328906 (Version 1)
Quarter: 2021Q2

REPORT INFORMATION
  Report Type: Report from Study
  Country: None (occurrence: CO)
  Receive Date: 20210528
  Receipt Date: 20210528
  Transmission Date: 20210717
  Serious: Yes (Hospitalization)
  Sender: FDA-Public Use
  Company Number: CO-ABBVIE-21K-036-3925467-00

PATIENT
  Age: 39 Year
  Sex: Male
  Weight: 76 kg

DRUGS (3)
  1. HUMIRA [Suspect]
     Active Substance: ADALIMUMAB
     Indication: ANKYLOSING SPONDYLITIS
     Route: 058
     Dates: end: 202105
  2. ACETAMINOPHEN. [Concomitant]
     Active Substance: ACETAMINOPHEN
     Indication: ADVERSE EVENT
     Route: 048
     Dates: start: 20210524
  3. HUMIRA [Suspect]
     Active Substance: ADALIMUMAB
     Indication: ANKYLOSING SPONDYLITIS
     Route: 058
     Dates: start: 20081113

REACTIONS (12)
  - Syncope [Recovering/Resolving]
  - Anxiety [Recovering/Resolving]
  - Herpes zoster [Recovering/Resolving]
  - Hyperhidrosis [Recovering/Resolving]
  - Hypotension [Recovering/Resolving]
  - Weight increased [Recovering/Resolving]
  - Dizziness [Recovering/Resolving]
  - Skin reaction [Recovering/Resolving]
  - Stress [Recovering/Resolving]
  - Chest pain [Recovering/Resolving]
  - Sleep disorder [Recovering/Resolving]
  - Back pain [Recovering/Resolving]

NARRATIVE: CASE EVENT DATE: 2021
